FAERS Safety Report 19141380 (Version 1)
Quarter: 2021Q2

REPORT INFORMATION
  Report Type: Spontaneous
  Country: DE (occurrence: DE)
  Receive Date: 20210415
  Receipt Date: 20210415
  Transmission Date: 20210717
  Serious: Yes (Life-Threatening, Hospitalization)
  Sender: FDA-Public Use
  Company Number: DE-TEVA-2021-DE-1899924

PATIENT
  Age: 71 Year
  Sex: Female
  Weight: 117 kg

DRUGS (18)
  1. TORASEMID [Suspect]
     Active Substance: TORSEMIDE
     Dosage: 100 MILLIGRAM DAILY; 1?1?0?0
  2. KALINOR [Concomitant]
     Dosage: 2 DOSAGE FORMS DAILY; 1?1?0?0
  3. LEVOTHYROXIN?NATRIUM [Concomitant]
     Active Substance: LEVOTHYROXINE SODIUM
     Dosage: 25 MICROGRAM DAILY; 1?0?0?0
  4. METOPROLOL. [Concomitant]
     Active Substance: METOPROLOL
     Dosage: 95 MILLIGRAM DAILY; 1?0?1?0
  5. NATRIUMHYDROGENCARBONAT [Concomitant]
     Active Substance: SODIUM BICARBONATE
     Dosage: 1000 MILLIGRAM DAILY; 1?0?1?0
  6. PANTOPRAZOL [Concomitant]
     Active Substance: PANTOPRAZOLE SODIUM
     Dosage: 40 MILLIGRAM DAILY; 1?0?0?0
  7. HUMALOG [Concomitant]
     Active Substance: INSULIN LISPRO
     Dosage: ACCORDING TO THE SCHEME, SOLUTION FOR INJECTION / INFUSION
     Route: 058
  8. EISEN  (II) [Concomitant]
     Dosage: 100 MILLIGRAM DAILY; 0?1?0?0
  9. ASS 100 [Concomitant]
     Active Substance: ASPIRIN
     Dosage: 100 MILLIGRAM DAILY; 0?1?0?0
  10. MACROGOL/KALIUMCHLORID/NATRIUMCARBONAT/NATRIUMCHLORID [Concomitant]
     Dosage: 1 DOSAGE FORMS DAILY; 1?0?0?0
  11. ACETAZOLAMID [Suspect]
     Active Substance: ACETAZOLAMIDE
     Dosage: 750 MILLIGRAM DAILY; 1?1?1?0
  12. SPIRONOLACTON [Suspect]
     Active Substance: SPIRONOLACTONE
     Dosage: 80 MILLIGRAM DAILY; 1?0?0?0
  13. SIMVASTATIN. [Concomitant]
     Active Substance: SIMVASTATIN
     Dosage: 20 MILLIGRAM DAILY; 0?0?1?0
  14. CANDESARTAN. [Concomitant]
     Active Substance: CANDESARTAN
     Dosage: 16 MILLIGRAM DAILY; 1?0?1?0
  15. DAPAGLIFLOZIN. [Concomitant]
     Active Substance: DAPAGLIFLOZIN
     Dosage: 10 MILLIGRAM DAILY; 1?0?0?0
  16. LANTUS [Concomitant]
     Active Substance: INSULIN GLARGINE
     Dosage: 8 IU (INTERNATIONAL UNIT) DAILY; 0?0?0?1, INJECTION / INFUSION SOLUTION
     Route: 058
  17. INDAPAMID [Suspect]
     Active Substance: INDAPAMIDE
     Dosage: 1.5 MILLIGRAM DAILY; 1?0?0?0
  18. ALLOPURINOL. [Concomitant]
     Active Substance: ALLOPURINOL
     Dosage: 150 MILLIGRAM DAILY; 1?0?0?0

REACTIONS (1)
  - Acute kidney injury [Unknown]

NARRATIVE: CASE EVENT DATE: 20210113
